FAERS Safety Report 5936359-3 (Version None)
Quarter: 2008Q4

REPORT INFORMATION
  Report Type: 
  Country: None (occurrence: None)
  Receive Date: 20081020
  Receipt Date: 20080916
  Transmission Date: 20090506
  Serious: Yes (Other)
  Sender: FDA-Public Use
  Company Number: US-WYE-H06023608

PATIENT
  Age: 36 Year
  Sex: Female
  Weight: 52.21 kg

DRUGS (1)
  1. ADVIL PM [Suspect]
     Indication: INSOMNIA
     Dosage: 2 CAPLETS DAILY, ORAL
     Route: 048
     Dates: start: 20080701, end: 20080701

REACTIONS (2)
  - ANXIETY [None]
  - RESTLESSNESS [None]
